FAERS Safety Report 4277596-6 (Version None)
Quarter: 2004Q1

REPORT INFORMATION
  Report Type: 
  Country: None (occurrence: None)
  Receive Date: 20040122
  Receipt Date: 20040115
  Transmission Date: 20041129
  Serious: Yes (Life-Threatening, Hospitalization)
  Sender: FDA-Public Use
  Company Number: WAES 0401USA01200

PATIENT
  Sex: Male

DRUGS (1)
  1. ZOCOR [Suspect]
     Indication: HYPERLIPIDAEMIA
     Route: 048

REACTIONS (3)
  - ANAPHYLACTIC REACTION [None]
  - ANGINA UNSTABLE [None]
  - MYOCARDIAL INFARCTION [None]
